FAERS Safety Report 8863401 (Version 1)
Quarter: 2012Q4

REPORT INFORMATION
  Report Type: 
  Country: GB (occurrence: GB)
  Receive Date: 20121024
  Receipt Date: 20121024
  Transmission Date: 20130627
  Serious: Yes (Death)
  Sender: FDA-Public Use
  Company Number: GB-ARROW GEN-2012-00293

PATIENT
  Age: 21 Year
  Sex: Male
  Weight: 110 kg

DRUGS (3)
  1. RISPERIDONE (UNKNOWN) [Suspect]
     Indication: AGGRESSION
     Dosage: , 1 mg in the morning and 1 mg in the evening1 mg, bid
     Route: 048
     Dates: start: 2006
  2. LAMOTRIGINE [Concomitant]
     Indication: EPILEPSY
     Dosage: 100 mg, bid
     Route: 065
     Dates: start: 20110810
  3. LAMOTRIGINE [Concomitant]
     Dosage: 25 mg, bid
     Route: 065
     Dates: start: 2011

REACTIONS (2)
  - Epilepsy [Fatal]
  - Therapy regimen changed [Unknown]
